FAERS Safety Report 5005594-3 (Version None)
Quarter: 2006Q2

REPORT INFORMATION
  Report Type: 
  Country: None (occurrence: None)
  Receive Date: 20060515
  Receipt Date: 20060505
  Transmission Date: 20061013
  Serious: Yes (Other)
  Sender: FDA-Public Use
  Company Number: 2006-04-0070

PATIENT
  Age: 51 Year
  Sex: Female
  Weight: 77.5651 kg

DRUGS (5)
  1. PEG-INTRON [Suspect]
     Indication: HEPATITIS C
     Dosage: 150 MCG QWK SUBCUTANEOUS
     Route: 058
     Dates: start: 20020531, end: 20030501
  2. REBETOL [Suspect]
     Indication: HEPATITIS C
     Dosage: 1200 MG QD ORAL
     Route: 048
     Dates: start: 20020531, end: 20030501
  3. TRILEPTAL [Concomitant]
  4. TRANXENE [Concomitant]
  5. PAXIL [Concomitant]

REACTIONS (2)
  - BREAST CANCER FEMALE [None]
  - CONVULSION [None]
